FAERS Safety Report 8086408-4 (Version None)
Quarter: 2012Q1

REPORT INFORMATION
  Report Type: 
  Country: None (occurrence: None)
  Receive Date: 20120128
  Receipt Date: 20110509
  Transmission Date: 20120608
  Serious: No
  Sender: FDA-Public Use
  Company Number: US-ABBOTT-11P-163-0724748-00

PATIENT
  Sex: Female
  Weight: 48.124 kg

DRUGS (1)
  1. HUMIRA [Suspect]
     Indication: JUVENILE ARTHRITIS
     Dates: start: 20100201

REACTIONS (2)
  - INCORRECT STORAGE OF DRUG [None]
  - GASTROINTESTINAL DISORDER [None]
